APPROVED DRUG PRODUCT: SELEGILINE HYDROCHLORIDE
Active Ingredient: SELEGILINE HYDROCHLORIDE
Strength: 5MG **Federal Register determination that product was not discontinued or withdrawn for safety or effectiveness reasons**
Dosage Form/Route: TABLET;ORAL
Application: N019334 | Product #001
Applicant: QUAGEN PHARMACEUTICALS LLC
Approved: Jun 5, 1989 | RLD: Yes | RS: No | Type: DISCN